FAERS Safety Report 4301283-9 (Version None)
Quarter: 2004Q1

REPORT INFORMATION
  Report Type: 
  Country: None (occurrence: None)
  Receive Date: 20040220
  Receipt Date: 20040220
  Transmission Date: 20041129
  Serious: Yes (Disabling)
  Sender: FDA-Public Use
  Company Number: None

PATIENT
  Age: 83 Year
  Sex: Female
  Weight: 121.1104 kg

DRUGS (21)
  1. BACLOFEN [Suspect]
     Indication: RESTLESS LEGS SYNDROME
     Dosage: 5 MG PO TID
     Route: 048
     Dates: start: 20040216, end: 20040217
  2. AMLODIPINE [Concomitant]
  3. BUFFERED ASPIRIN [Concomitant]
  4. CALCIUM /VIT D [Concomitant]
  5. CLONAZEPAM [Concomitant]
  6. CLOPIDOGREL BISULFATE [Concomitant]
  7. CYANOCOBALAMIN [Concomitant]
  8. ENOXAPARIN SODIUM [Concomitant]
  9. ESCITALOPRAM [Concomitant]
  10. FUROSEMIDE [Concomitant]
  11. .. [Concomitant]
  12. GABAPENTIN [Concomitant]
  13. HYDROCHLOROTHIAZIDE [Concomitant]
  14. LEVOTHYROXINE SODIUM [Concomitant]
  15. MULTI-VITAMIN [Concomitant]
  16. NYSTATIN [Concomitant]
  17. SIMVASTATIN [Concomitant]
  18. VITAMIN E [Concomitant]
  19. ACETAMINOPHEN [Concomitant]
  20. DIPHENHYDRAMINE HCL [Concomitant]
  21. INSULIN LISPRO (SLIDING SCALE) [Concomitant]

REACTIONS (5)
  - APHASIA [None]
  - ASTHENIA [None]
  - DEPRESSED LEVEL OF CONSCIOUSNESS [None]
  - LETHARGY [None]
  - MUTISM [None]
